FAERS Safety Report 11468906 (Version 2)
Quarter: 2015Q4

REPORT INFORMATION
  Report Type: Spontaneous
  Country: US (occurrence: US)
  Receive Date: 20150908
  Receipt Date: 20151014
  Transmission Date: 20160304
  Serious: No
  Sender: FDA-Public Use
  Company Number: US-GLAXOSMITHKLINE-A0654590A

PATIENT
  Age: 61 Year
  Sex: Male

DRUGS (10)
  1. ADVAIR DISKUS [Suspect]
     Active Substance: FLUTICASONE PROPIONATE\SALMETEROL XINAFOATE
     Indication: ASTHMA
     Dosage: 1 PUFF(S), UNK
     Route: 055
  2. AZATHIOPRINE. [Concomitant]
     Active Substance: AZATHIOPRINE
  3. ADVAIR DISKUS [Suspect]
     Active Substance: FLUTICASONE PROPIONATE\SALMETEROL XINAFOATE
     Dosage: 1 PUFF(S), BID
     Route: 055
     Dates: start: 1998
  4. BALSALAZIDE [Concomitant]
     Active Substance: BALSALAZIDE
  5. POTASSIUM CITRATE. [Concomitant]
     Active Substance: POTASSIUM CITRATE
  6. HYDROCHLOROTHIAZIDE. [Concomitant]
     Active Substance: HYDROCHLOROTHIAZIDE
  7. UROCIT K [Concomitant]
  8. PRAVASTATIN [Concomitant]
     Active Substance: PRAVASTATIN\PRAVASTATIN SODIUM
  9. ASPIRIN. [Concomitant]
     Active Substance: ASPIRIN
  10. UROXATRAL [Concomitant]
     Active Substance: ALFUZOSIN HYDROCHLORIDE

REACTIONS (8)
  - Heart rate increased [Recovered/Resolved]
  - Accidental overdose [Recovered/Resolved]
  - Chest discomfort [Unknown]
  - Product quality issue [Unknown]
  - Heart rate increased [Unknown]
  - Palpitations [Recovered/Resolved]
  - Palpitations [Unknown]
  - Initial insomnia [Unknown]

NARRATIVE: CASE EVENT DATE: 20070606
